FAERS Safety Report 11925676 (Version 3)
Quarter: 2016Q1

REPORT INFORMATION
  Report Type: Report from Study
  Country: JP (occurrence: JP)
  Receive Date: 20160118
  Receipt Date: 20160201
  Transmission Date: 20160526
  Serious: Yes (Death, Other)
  Sender: FDA-Public Use
  Company Number: PHJP2016JP001012

PATIENT
  Age: 72 Year
  Sex: Male

DRUGS (11)
  1. TRAMAL [Concomitant]
     Active Substance: TRAMADOL
     Indication: RENAL CELL CARCINOMA STAGE IV
     Dosage: 100 MG, UNK
     Route: 065
     Dates: start: 20111005, end: 20111005
  2. ZOMETA [Concomitant]
     Active Substance: ZOLEDRONIC ACID
     Indication: RENAL CELL CARCINOMA STAGE IV
     Dosage: 4 MG, UNK
     Route: 065
     Dates: start: 20111011, end: 20111108
  3. MEDICON                            /02167701/ [Concomitant]
     Active Substance: DEXTROMETHORPHAN HYDROBROMIDE\POTASSIUM CREOSOTESULFONATE
     Indication: RENAL CELL CARCINOMA STAGE IV
     Dosage: 45 MG, UNK
     Route: 065
     Dates: start: 20110927, end: 20111011
  4. SELBEX [Concomitant]
     Active Substance: TEPRENONE
     Indication: PRODUCT USED FOR UNKNOWN INDICATION
     Dosage: 50 MG, UNK
     Route: 065
     Dates: start: 20110312
  5. AFINITOR [Suspect]
     Active Substance: EVEROLIMUS
     Indication: RENAL CELL CARCINOMA STAGE IV
     Dosage: 10 MG, QD
     Route: 048
     Dates: start: 20110906, end: 20110923
  6. CALONAL [Concomitant]
     Active Substance: ACETAMINOPHEN
     Indication: RENAL CELL CARCINOMA STAGE IV
     Dosage: 1200 MG, UNK
     Route: 065
     Dates: start: 20110920, end: 20111001
  7. AFINITOR [Suspect]
     Active Substance: EVEROLIMUS
     Dosage: 10 MG, UNK
     Route: 048
     Dates: start: 20111008, end: 20111013
  8. DEPAKENE [Concomitant]
     Active Substance: VALPROIC ACID
     Indication: RENAL CELL CARCINOMA STAGE IV
     Dosage: 1200 MG, UNK
     Route: 065
     Dates: start: 20110427
  9. AZUNOL                             /00517002/ [Concomitant]
     Indication: PROPHYLAXIS
     Dosage: 5 ML, UNK
     Route: 049
     Dates: start: 20110906, end: 20111013
  10. TOPINA [Concomitant]
     Active Substance: TOPIRAMATE
     Indication: RENAL CELL CARCINOMA STAGE IV
     Dosage: 100 MG, UNK
     Route: 065
     Dates: start: 20110521
  11. NORVASC [Concomitant]
     Active Substance: AMLODIPINE BESYLATE
     Indication: HYPERTENSION
     Dosage: 5 MG, UNK
     Route: 065
     Dates: start: 20110520

REACTIONS (6)
  - Platelet count decreased [Recovered/Resolved]
  - Hypophosphataemia [Not Recovered/Not Resolved]
  - Hyperuricaemia [Not Recovered/Not Resolved]
  - Hypertriglyceridaemia [Not Recovered/Not Resolved]
  - Weight decreased [Not Recovered/Not Resolved]
  - Malignant neoplasm progression [Fatal]

NARRATIVE: CASE EVENT DATE: 20111011
